FAERS Safety Report 8277072-X (Version None)
Quarter: 2012Q2

REPORT INFORMATION
  Report Type: 
  Country: None (occurrence: None)
  Receive Date: 20120412
  Receipt Date: 20120328
  Transmission Date: 20120825
  Serious: Yes (Death, Hospitalization, Other)
  Sender: FDA-Public Use
  Company Number: US-ROCHE-1057446

PATIENT
  Age: 32 Year
  Sex: Female

DRUGS (4)
  1. WARFARIN SODIUM [Suspect]
     Indication: ANTICOAGULANT THERAPY
  2. ALTEPLASE [Suspect]
     Indication: VENOUS THROMBOSIS
     Route: 042
  3. LEPIRUDIN [Suspect]
     Indication: ANTICOAGULANT THERAPY
  4. HEPARIN SODIUM [Suspect]
     Indication: VENOUS THROMBOSIS

REACTIONS (7)
  - HYDROCEPHALUS [None]
  - INTRACRANIAL VENOUS SINUS THROMBOSIS [None]
  - CEREBRAL INFARCTION [None]
  - BRAIN HERNIATION [None]
  - MENTAL STATUS CHANGES [None]
  - SUBDURAL HAEMATOMA [None]
  - BASAL GANGLIA INFARCTION [None]
